FAERS Safety Report 6286109-9 (Version None)
Quarter: 2009Q3

REPORT INFORMATION
  Report Type: 
  Country: None (occurrence: None)
  Receive Date: 20090728
  Receipt Date: 20090715
  Transmission Date: 20100115
  Serious: Yes (Death)
  Sender: FDA-Public Use
  Company Number: US-ROCHE-641000

PATIENT
  Sex: Male

DRUGS (3)
  1. MYCOPHENOLATE MOFETIL [Suspect]
     Indication: PULMONARY FIBROSIS
     Dosage: DOSING AMOUNT: 500
     Route: 065
     Dates: start: 20081201
  2. MYCOPHENOLATE MOFETIL [Suspect]
     Dosage: TDD 1500
     Route: 065
     Dates: start: 20090101
  3. AMBRISENTAN [Suspect]
     Indication: PULMONARY HYPERTENSION
     Route: 065

REACTIONS (1)
  - PULMONARY FIBROSIS [None]
